FAERS Safety Report 14919521 (Version 2)
Quarter: 2018Q2

REPORT INFORMATION
  Report Type: Spontaneous
  Country: US (occurrence: US)
  Receive Date: 20180521
  Receipt Date: 20180620
  Transmission Date: 20180711
  Serious: No
  Sender: FDA-Public Use
  Company Number: US-ASTRAZENECA-2018SE65213

PATIENT
  Sex: Male
  Weight: 121.6 kg

DRUGS (12)
  1. INVOKANA [Concomitant]
     Active Substance: CANAGLIFLOZIN
  2. FOSINOPRIL [Concomitant]
     Active Substance: FOSINOPRIL
     Indication: HYPERTENSION
     Dosage: 10.0MG UNKNOWN
  3. OVER THE COUNTER VITAMIN E [Concomitant]
     Dosage: 400 IU
  4. BABY ASPIRIN [Concomitant]
     Active Substance: ASPIRIN
  5. OMEPRAZOLE. [Suspect]
     Active Substance: OMEPRAZOLE
     Indication: ABDOMINAL DISCOMFORT
     Route: 048
     Dates: start: 20180516
  6. VITAMIN D [Concomitant]
     Active Substance: CHOLECALCIFEROL
     Dosage: VITAMIN D
  7. LORATADINE. [Concomitant]
     Active Substance: LORATADINE
  8. PIOGLITAZONE. [Concomitant]
     Active Substance: PIOGLITAZONE
     Dates: end: 201804
  9. CALCIUM [Concomitant]
     Active Substance: CALCIUM
  10. FAMOTIDINE. [Concomitant]
     Active Substance: FAMOTIDINE
  11. BYDUREON [Suspect]
     Active Substance: EXENATIDE
     Indication: WEIGHT ABNORMAL
     Route: 058
     Dates: start: 201804
  12. METFORMIN [Concomitant]
     Active Substance: METFORMIN HYDROCHLORIDE

REACTIONS (13)
  - Injection site haemorrhage [Unknown]
  - Malaise [Unknown]
  - Off label use [Unknown]
  - International normalised ratio increased [Unknown]
  - Eructation [Unknown]
  - Abdominal distension [Unknown]
  - Vomiting psychogenic [Unknown]
  - Diarrhoea [Unknown]
  - Flatulence [Unknown]
  - Abdominal pain upper [Unknown]
  - Abdominal discomfort [Unknown]
  - Product use in unapproved indication [Unknown]
  - Weight decreased [Unknown]
